FAERS Safety Report 4998147-4 (Version None)
Quarter: 2006Q2

REPORT INFORMATION
  Report Type: 
  Country: None (occurrence: None)
  Receive Date: 20060510
  Receipt Date: 20060502
  Transmission Date: 20061013
  Serious: Yes (Disabling)
  Sender: FDA-Public Use
  Company Number: US-MERCK-0605USA00817

PATIENT
  Sex: Male

DRUGS (2)
  1. VIOXX [Suspect]
     Indication: INJURY
     Route: 048
     Dates: start: 20001101, end: 20030503
  2. VIOXX [Suspect]
     Indication: ROAD TRAFFIC ACCIDENT
     Route: 048
     Dates: start: 20001101, end: 20030503

REACTIONS (1)
  - MYOCARDIAL INFARCTION [None]
